FAERS Safety Report 6598021-6 (Version None)
Quarter: 2010Q1

REPORT INFORMATION
  Report Type: 
  Country: None (occurrence: None)
  Receive Date: 20100223
  Receipt Date: 20091228
  Transmission Date: 20100710
  Serious: No
  Sender: FDA-Public Use
  Company Number: US-ALLERGAN-0917762US

PATIENT
  Sex: Female

DRUGS (5)
  1. BOTOX [Suspect]
     Indication: TORTICOLLIS
     Dosage: UNK
     Route: 030
     Dates: start: 20091104, end: 20091104
  2. BOTOX [Suspect]
     Indication: HEADACHE
  3. TORADOL [Concomitant]
  4. PERCOCET [Concomitant]
  5. LORTAB [Concomitant]

REACTIONS (6)
  - DISTURBANCE IN ATTENTION [None]
  - DYSPHAGIA [None]
  - FATIGUE [None]
  - HEADACHE [None]
  - INJECTION SITE PAIN [None]
  - NECK PAIN [None]
